FAERS Safety Report 13543552 (Version 1)
Quarter: 2017Q2

REPORT INFORMATION
  Report Type: Spontaneous
  Country: US (occurrence: US)
  Receive Date: 20170515
  Receipt Date: 20170515
  Transmission Date: 20170830
  Serious: Yes (Death)
  Sender: FDA-Public Use
  Company Number: US-ROCHE-1935031

PATIENT
  Age: 63 Year
  Sex: Female

DRUGS (1)
  1. XELODA [Suspect]
     Active Substance: CAPECITABINE
     Indication: OVARIAN CANCER
     Dosage: 3 TABLETS TWICE DAILY FOR 7 DAYS ON AND 7 DAYS OFF?LAST DOSE OF CAPECITABINE WAS ADMINISTERED ON 07/
     Route: 048
     Dates: start: 20170316

REACTIONS (1)
  - Death [Fatal]

NARRATIVE: CASE EVENT DATE: 20170507
